FAERS Safety Report 10521465 (Version 1)
Quarter: 2014Q4

REPORT INFORMATION
  Report Type: Spontaneous
  Country: US (occurrence: None)
  Receive Date: 20141002
  Receipt Date: 20141002
  Transmission Date: 20150528
  Serious: Yes (Hospitalization, Other)
  Sender: FDA-Public Use
  Company Number: 1036660U

PATIENT
  Age: 27 Year
  Sex: Female
  Weight: 97.9 kg

DRUGS (4)
  1. VIMPAT [Suspect]
     Active Substance: LACOSAMIDE
     Indication: SEIZURE
     Dates: start: 2012, end: 20140501
  2. KEPPRA XR [Suspect]
     Active Substance: LEVETIRACETAM
     Indication: SEIZURE
     Dates: start: 201211
  3. NAPROXEN (NAPROXEN SODIUM) [Concomitant]
  4. TOPAMAX [Concomitant]
     Active Substance: TOPIRAMATE

REACTIONS (2)
  - Inappropriate schedule of drug administration [None]
  - Seizure [None]

NARRATIVE: CASE EVENT DATE: 201211
